FAERS Safety Report 13282485 (Version 1)
Quarter: 2017Q1

REPORT INFORMATION
  Report Type: Spontaneous
  Country: US (occurrence: US)
  Receive Date: 20170301
  Receipt Date: 20170301
  Transmission Date: 20170428
  Serious: No
  Sender: FDA-Public Use
  Company Number: US-BAUSCH-BL-2016-027726

PATIENT
  Sex: Female

DRUGS (1)
  1. FLURBIPROFEN SODIUM OPHTHALMIC SOLUTION USP 0.03% [Suspect]
     Active Substance: FLURBIPROFEN SODIUM
     Indication: EAR PAIN
     Route: 001

REACTIONS (2)
  - Incorrect route of drug administration [Unknown]
  - No adverse event [Unknown]
